FAERS Safety Report 6717622-5 (Version None)
Quarter: 2010Q2

REPORT INFORMATION
  Report Type: 
  Country: None (occurrence: None)
  Receive Date: 20100507
  Receipt Date: 20100507
  Transmission Date: 20101027
  Serious: Yes (Other)
  Sender: FDA-Public Use
  Company Number: None

PATIENT
  Age: 42 Year
  Sex: Female
  Weight: 54.4316 kg

DRUGS (2)
  1. VIACTIV [Suspect]
     Indication: MINERAL SUPPLEMENTATION
     Dosage: 1 - 2 TWICE BUCCAL 1 MONTH FEW WEEKS
     Route: 002
     Dates: start: 20100305, end: 20100420
  2. VIACTIV [Suspect]
     Indication: VITAMIN D
     Dosage: 1 - 2 TWICE BUCCAL 1 MONTH FEW WEEKS
     Route: 002
     Dates: start: 20100305, end: 20100420

REACTIONS (1)
  - HEADACHE [None]
